FAERS Safety Report 11578915 (Version 1)
Quarter: 2015Q3

REPORT INFORMATION
  Report Type: Report from Study
  Country: US (occurrence: US)
  Receive Date: 20150930
  Receipt Date: 20150930
  Transmission Date: 20151125
  Serious: Yes (Other)
  Sender: FDA-Public Use
  Company Number: US-JNJFOC-20150927354

PATIENT
  Age: 71 Year
  Sex: Female

DRUGS (1)
  1. IMBRUVICA [Suspect]
     Active Substance: IBRUTINIB
     Indication: LYMPHOMA
     Route: 048
     Dates: start: 20150801

REACTIONS (3)
  - Off label use [Unknown]
  - Transient ischaemic attack [Unknown]
  - Nausea [Unknown]

NARRATIVE: CASE EVENT DATE: 2015
